FAERS Safety Report 26043305 (Version 1)
Quarter: 2025Q4

REPORT INFORMATION
  Report Type: Spontaneous
  Country: EU (occurrence: EU)
  Receive Date: 20251113
  Receipt Date: 20251113
  Transmission Date: 20260118
  Serious: Yes (Other)
  Sender: ABBVIE
  Company Number: None

PATIENT
  Age: 66 Year
  Sex: Male

DRUGS (7)
  1. AVIBACTAM SODIUM\CEFTAZIDIME [Suspect]
     Active Substance: AVIBACTAM SODIUM\CEFTAZIDIME
     Indication: Product used for unknown indication
     Dosage: 2 G, 3X/DAY (EVERY 8 HOURS),?AVIBACTAM SODIUM- 0.5 G?CEFTAZIDIME PENTAHYDRATE- 2 G
     Route: 042
     Dates: start: 20250918, end: 20250921
  2. FENTANYL [Concomitant]
     Active Substance: FENTANYL
     Indication: Product used for unknown indication
     Dosage: 25 UG, EVERY 72 HOURS
     Route: 062
  3. ASPIRIN [Concomitant]
     Active Substance: ASPIRIN
     Indication: Product used for unknown indication
     Dosage: 100 MG, 1X/DAY
     Route: 048
     Dates: start: 20230605
  4. OMEPRAZOLE [Concomitant]
     Active Substance: OMEPRAZOLE
     Indication: Product used for unknown indication
     Dosage: 20 MG, 1X/DAY
     Route: 048
  5. Atorvastatina stadagen [Concomitant]
     Indication: Product used for unknown indication
     Dosage: 40 MG, 1X/DAY
     Route: 048
     Dates: start: 20230605
  6. RYBELSUS [Concomitant]
     Active Substance: SEMAGLUTIDE
     Indication: Type 2 diabetes mellitus
     Dosage: 7 MG, 1X/DAY
     Route: 048
     Dates: start: 20230213
  7. SYNJARDY [Concomitant]
     Active Substance: EMPAGLIFLOZIN\METFORMIN HYDROCHLORIDE
     Indication: Type 2 diabetes mellitus
     Dosage: 1 DF, 2X/DAY (EVERY 12 HOURS),?METFORMIN HYDROCHLORIDE- 1000 MG?EMPAGLIFLOZIN-5 MG
     Route: 048
     Dates: start: 20221129

REACTIONS (1)
  - Tremor [Recovered/Resolved]

NARRATIVE: CASE EVENT DATE: 20250918
